FAERS Safety Report 6843455-5 (Version None)
Quarter: 2010Q3

REPORT INFORMATION
  Report Type: 
  Country: None (occurrence: None)
  Receive Date: 20100715
  Receipt Date: 20100709
  Transmission Date: 20110219
  Serious: Yes (Death, Life-Threatening, Hospitalization, Other)
  Sender: FDA-Public Use
  Company Number: JP-JNJFOC-20100502609

PATIENT
  Sex: Female

DRUGS (20)
  1. DUROTEP MT [Suspect]
     Indication: SMALL CELL LUNG CANCER STAGE UNSPECIFIED
     Route: 062
  2. DUROTEP MT [Suspect]
     Indication: ANALGESIC THERAPY
     Route: 062
  3. DUROTEP MT [Suspect]
     Indication: CANCER PAIN
     Route: 062
  4. NOVAMIN [Concomitant]
     Route: 048
  5. NORVASC [Concomitant]
     Route: 048
  6. MUCOSTA [Concomitant]
     Route: 048
  7. MYONAL [Concomitant]
     Route: 048
  8. MEDICON [Concomitant]
     Route: 048
  9. BIOFERMIN [Concomitant]
     Route: 048
  10. LOXONIN [Concomitant]
     Route: 048
  11. TAKEPRON [Concomitant]
     Route: 048
  12. MAGMITT [Concomitant]
     Route: 048
  13. PURSENNID [Concomitant]
     Route: 048
  14. RESLIN [Concomitant]
     Route: 048
  15. MYSLEE [Concomitant]
     Route: 048
  16. AZUNOL ST [Concomitant]
     Route: 065
  17. OPSO [Concomitant]
     Route: 048
  18. LENDORMIN D [Concomitant]
     Route: 048
  19. MYSLEE [Concomitant]
     Route: 048
  20. ANPEC [Concomitant]
     Route: 054

REACTIONS (4)
  - DEPRESSED LEVEL OF CONSCIOUSNESS [None]
  - PLEURAL EFFUSION [None]
  - PNEUMONIA [None]
  - RESPIRATORY DEPRESSION [None]
